FAERS Safety Report 9905846 (Version 1)
Quarter: 2014Q1

REPORT INFORMATION
  Report Type: Spontaneous
  Country: US (occurrence: US)
  Receive Date: 20140218
  Receipt Date: 20140218
  Transmission Date: 20141002
  Serious: Yes (Other)
  Sender: FDA-Public Use
  Company Number: US-SA-2014SA018728

PATIENT
  Sex: Female

DRUGS (2)
  1. PLAVIX [Suspect]
     Route: 065
  2. XARELTO [Suspect]
     Route: 065

REACTIONS (3)
  - Atrial fibrillation [Unknown]
  - Urticaria [Unknown]
  - Rash [Unknown]
